FAERS Safety Report 9973652 (Version 1)
Quarter: 2014Q1

REPORT INFORMATION
  Report Type: Spontaneous
  Country: US (occurrence: None)
  Receive Date: 20140214
  Receipt Date: 20140214
  Transmission Date: 20141002
  Serious: Yes (Other)
  Sender: FDA-Public Use
  Company Number: US-013385

PATIENT
  Age: 82 Year
  Sex: Male

DRUGS (4)
  1. PICO-SALAX (NOT SPECIFIED) [Suspect]
     Indication: BOWEL PREPARATION
     Dosage: (1ST DOSE ON 10-OCT-2013 AFTERNOON; 2ND DOSE ON 11-OCT-2013 EARLY MORNING)
     Dates: start: 20131010, end: 20131011
  2. METFORMIN [Concomitant]
  3. LIPITOR [Concomitant]
  4. ATENOLOL [Concomitant]

REACTIONS (1)
  - Colon cancer [None]
